FAERS Safety Report 8388964-5 (Version None)
Quarter: 2012Q2

REPORT INFORMATION
  Report Type: 
  Country: None (occurrence: None)
  Receive Date: 20120528
  Receipt Date: 20120517
  Transmission Date: 20120825
  Serious: Yes (Other)
  Sender: FDA-Public Use
  Company Number: JP-BRISTOL-MYERS SQUIBB COMPANY-16530412

PATIENT
  Age: 43 Year
  Sex: Male
  Weight: 87 kg

DRUGS (5)
  1. AKINETON [Concomitant]
     Dosage: TABS
     Dates: start: 20040113
  2. ABILIFY [Suspect]
     Indication: SCHIZOPHRENIA
     Dosage: 12MG 2-15AP11 31MR-26AP12 24MG 16-29AP11 23JL-16SE11 30MG 30AP-22JL11 18MG 17SE11-30MR12 9MG 27AP12
     Route: 048
     Dates: start: 20110402
  3. LEXOTAN [Concomitant]
     Dosage: TABS
     Dates: start: 20040113
  4. SILECE [Concomitant]
     Dosage: TABS
     Dates: start: 20040113
  5. MAGNESIUM SULFATE [Concomitant]
     Dosage: TABS
     Dates: start: 20100703

REACTIONS (1)
  - HYPERTRICHOSIS [None]
